FAERS Safety Report 7777664-8 (Version None)
Quarter: 2011Q3

REPORT INFORMATION
  Report Type: 
  Country: None (occurrence: None)
  Receive Date: 20110926
  Receipt Date: 20110922
  Transmission Date: 20111222
  Serious: Yes (Hospitalization)
  Sender: FDA-Public Use
  Company Number: CA-ABBOTT-11P-028-0855464-00

PATIENT
  Sex: Female
  Weight: 60.382 kg

DRUGS (4)
  1. MIRTAZAPINE [Concomitant]
     Indication: SLEEP DISORDER THERAPY
     Route: 048
  2. HUMIRA [Suspect]
     Indication: ANKYLOSING SPONDYLITIS
     Route: 058
     Dates: start: 20110804
  3. RABEPRAZOLE SODIUM [Concomitant]
     Indication: ANKYLOSING SPONDYLITIS
     Route: 048
     Dates: start: 20110101
  4. PAXIL [Concomitant]
     Indication: ANTIDEPRESSANT THERAPY
     Route: 048

REACTIONS (16)
  - DEHYDRATION [None]
  - VIRAL INFECTION [None]
  - PAIN [None]
  - NAUSEA [None]
  - LYMPHOCYTOSIS [None]
  - HEADACHE [None]
  - MUSCULOSKELETAL STIFFNESS [None]
  - HANTAVIRUS PULMONARY INFECTION [None]
  - NECK PAIN [None]
  - HYPOTENSION [None]
  - URINARY TRACT INFECTION BACTERIAL [None]
  - PYREXIA [None]
  - FATIGUE [None]
  - URINE KETONE BODY PRESENT [None]
  - HYPERAESTHESIA [None]
  - RENAL IMPAIRMENT [None]
